FAERS Safety Report 9785301 (Version 1)
Quarter: 2013Q4

REPORT INFORMATION
  Report Type: Spontaneous
  Country: US (occurrence: US)
  Receive Date: 20131227
  Receipt Date: 20131227
  Transmission Date: 20140711
  Serious: Yes (Hospitalization)
  Sender: FDA-Public Use
  Company Number: US-JNJFOC-20131211895

PATIENT
  Age: 54 Year
  Sex: Female

DRUGS (5)
  1. DOXORUBICIN HYDROCHLORIDE [Suspect]
     Indication: OVARIAN CANCER
     Route: 042
     Dates: start: 20130904
  2. PLACEBO [Suspect]
     Indication: OVARIAN CANCER
     Dosage: (2.5MG ON DAY 1, 3, 5, 15, 17 AND 19)
     Route: 042
     Dates: start: 20130904
  3. EC145 [Suspect]
     Indication: OVARIAN CANCER
     Dosage: ON DAY 1, 3, 5, 15, 17 AND 19
     Route: 042
     Dates: start: 20130904
  4. EC20 [Suspect]
     Indication: SINGLE PHOTON EMISSION COMPUTERISED TOMOGRAM
     Route: 042
     Dates: start: 20130808, end: 20130808
  5. FOLIC ACID [Suspect]
     Indication: SINGLE PHOTON EMISSION COMPUTERISED TOMOGRAM
     Dosage: 25.3 MILLICURIES
     Route: 042
     Dates: start: 20130808, end: 20130808

REACTIONS (1)
  - Failure to thrive [Unknown]
